FAERS Safety Report 6044651-X (Version None)
Quarter: 2009Q1

REPORT INFORMATION
  Report Type: 
  Country: None (occurrence: None)
  Receive Date: 20090120
  Receipt Date: 20081219
  Transmission Date: 20090719
  Serious: Yes (Hospitalization)
  Sender: FDA-Public Use
  Company Number: FR-PFIZER INC-2009150048

PATIENT

DRUGS (10)
  1. BLINDED THERAPY [Suspect]
     Dosage: BLINDED
     Route: 048
     Dates: start: 20051223
  2. LIPANTHYL [Concomitant]
     Indication: DYSLIPIDAEMIA
     Dosage: 160 MG, 1X/DAY
     Route: 048
     Dates: start: 20050601
  3. TANAKAN [Concomitant]
     Indication: VENOUS INSUFFICIENCY
     Dosage: 40 MG, 3X/DAY
     Route: 048
     Dates: start: 20031001
  4. NOVORAPID [Concomitant]
     Indication: INSULIN-REQUIRING TYPE 2 DIABETES MELLITUS
     Dosage: 12-10-10
     Route: 058
     Dates: start: 20060307
  5. LEVEMIR [Concomitant]
     Indication: INSULIN-REQUIRING TYPE 2 DIABETES MELLITUS
     Dosage: 62 IU, 1X/DAY
     Route: 058
     Dates: start: 20051117, end: 20060306
  6. LEVEMIR [Concomitant]
     Dosage: 30 IU, 1X/DAY
     Route: 058
     Dates: start: 20060308
  7. NAPROXEN SODIUM [Concomitant]
     Indication: OSTEOARTHRITIS
     Dosage: 550 MG, 2X/DAY
     Route: 048
     Dates: start: 20051219
  8. KARDEGIC [Concomitant]
     Indication: PROPHYLAXIS
     Dosage: 75 MG, 1X/DAY
     Route: 048
     Dates: start: 20070208
  9. FLUDEX [Concomitant]
     Indication: HYPERTENSION
     Dosage: 1.5 MG, 1X/DAY
     Route: 048
     Dates: start: 20070627
  10. CALCITONINE [Concomitant]
     Indication: HYPERTENSION
     Dosage: 100 IU, 1X/DAY
     Route: 042
     Dates: start: 20070627

REACTIONS (1)
  - DIARRHOEA HAEMORRHAGIC [None]
